FAERS Safety Report 19658083 (Version 4)
Quarter: 2021Q3

REPORT INFORMATION
  Report Type: Report from Study
  Country: AT (occurrence: AT)
  Receive Date: 20210805
  Receipt Date: 20210816
  Transmission Date: 20211014
  Serious: Yes (Hospitalization)
  Sender: FDA-Public Use
  Company Number: AT-BRISTOL-MYERS SQUIBB COMPANY-BMS-2021-074856

PATIENT
  Age: 82 Year
  Sex: Male
  Weight: 70 kg

DRUGS (4)
  1. IPILIMUMAB [Suspect]
     Active Substance: IPILIMUMAB
     Indication: RECTAL CANCER
     Dosage: 1 MILLIGRAM/KILOGRAM, ONCE
     Route: 042
     Dates: start: 20210622, end: 20210727
  2. LISINOPRIL. [Concomitant]
     Active Substance: LISINOPRIL
     Indication: HYPERTENSION
     Dosage: 20 MILLIGRAM, QD
     Route: 048
  3. FINASTERID [Concomitant]
     Active Substance: FINASTERIDE
     Indication: BENIGN PROSTATIC HYPERPLASIA
     Dosage: 5 MILLIGRAM, QD
     Route: 048
  4. NIVOLUMAB [Suspect]
     Active Substance: NIVOLUMAB
     Indication: RECTAL CANCER
     Dosage: 3 MILLIGRAM/KILOGRAM, Q2W, 3 TIMES
     Route: 042
     Dates: start: 20210622, end: 20210727

REACTIONS (2)
  - Myositis [Recovering/Resolving]
  - COVID-19 [Recovered/Resolved]

NARRATIVE: CASE EVENT DATE: 20210728
